FAERS Safety Report 6612203-6 (Version None)
Quarter: 2010Q1

REPORT INFORMATION
  Report Type: 
  Country: None (occurrence: None)
  Receive Date: 20100302
  Receipt Date: 20100302
  Transmission Date: 20100710
  Serious: Yes (Death)
  Sender: FDA-Public Use
  Company Number: None

PATIENT
  Sex: Female
  Weight: 58.9676 kg

DRUGS (1)
  1. CELEBREX [Suspect]
     Indication: PAIN
     Dosage: 1 PILL TWICE DAILY PO
     Route: 048
     Dates: start: 20071020, end: 20071201

REACTIONS (3)
  - ASTHENIA [None]
  - RESPIRATORY ARREST [None]
  - SEPSIS [None]
